FAERS Safety Report 8376401-6 (Version None)
Quarter: 2012Q2

REPORT INFORMATION
  Report Type: 
  Country: None (occurrence: None)
  Receive Date: 20120522
  Receipt Date: 20120518
  Transmission Date: 20120825
  Serious: Yes (Death)
  Sender: FDA-Public Use
  Company Number: US-CELGENEUS-163-21880-12052273

PATIENT
  Sex: Male
  Weight: 95.34 kg

DRUGS (6)
  1. REVLIMID [Suspect]
     Indication: MULTIPLE MYELOMA
     Dosage: 10 MILLIGRAM
     Route: 048
     Dates: start: 20101109, end: 20120418
  2. KEPPRA [Concomitant]
     Dosage: 750 MILLIGRAM
     Route: 065
  3. AMBIEN CR [Concomitant]
     Dosage: 6.25 MILLIGRAM
     Route: 065
  4. VICODIN ES [Concomitant]
     Dosage: 7.5MG/750MG
     Route: 065
  5. VELCADE [Concomitant]
     Dosage: 3.5 MILLIGRAM
     Route: 041
  6. CYANOCOBALAMIN [Concomitant]
     Dosage: 3MG/35MG/2MG
     Route: 065

REACTIONS (1)
  - DEATH [None]
